FAERS Safety Report 22832292 (Version 2)
Quarter: 2023Q4

REPORT INFORMATION
  Report Type: Spontaneous
  Country: US (occurrence: US)
  Receive Date: 20230817
  Receipt Date: 20231201
  Transmission Date: 20240109
  Serious: Yes (Hospitalization, Other)
  Sender: FDA-Public Use
  Company Number: US-APOTEX-2023AP012035

PATIENT
  Age: 47 Year
  Sex: Female

DRUGS (2)
  1. SIROLIMUS [Suspect]
     Active Substance: SIROLIMUS
     Indication: Neoplasm prophylaxis
     Dosage: UNK
     Route: 065
  2. SIROLIMUS [Suspect]
     Active Substance: SIROLIMUS
     Indication: Neuroendocrine carcinoma of the skin

REACTIONS (2)
  - Neoplasm recurrence [Not Recovered/Not Resolved]
  - Neuroendocrine carcinoma of the skin [Not Recovered/Not Resolved]
